FAERS Safety Report 7105104-0 (Version None)
Quarter: 2010Q4

REPORT INFORMATION
  Report Type: 
  Country: None (occurrence: None)
  Receive Date: 20101116
  Receipt Date: 20101105
  Transmission Date: 20110411
  Serious: Yes (Death, Other)
  Sender: FDA-Public Use
  Company Number: US-JNJFOC-20101103088

PATIENT
  Age: 58 Year
  Sex: Female

DRUGS (1)
  1. DOXIL [Suspect]
     Indication: OVARIAN EPITHELIAL CANCER RECURRENT
     Dosage: UNSPECIFIED DOSE EVERY 4-7 WEEKS FOR 7 YEARS;  CUMULATIVE DOSE 1730 MG/M2
     Route: 042

REACTIONS (3)
  - DEATH [None]
  - HYPERTENSION [None]
  - RENAL FAILURE [None]
